FAERS Safety Report 5067550-9 (Version None)
Quarter: 2006Q3

REPORT INFORMATION
  Report Type: 
  Country: None (occurrence: None)
  Receive Date: 20060731
  Receipt Date: 20060712
  Transmission Date: 20061208
  Serious: Yes (Disabling)
  Sender: FDA-Public Use
  Company Number: US200607002341

PATIENT
  Age: 63 Year
  Sex: Male

DRUGS (2)
  1. CIALIS [Suspect]
     Indication: ERECTILE DYSFUNCTION
     Dosage: 200 MG
  2. ASPIRIN [Concomitant]

REACTIONS (10)
  - ANGIOPATHY [None]
  - CATARACT NUCLEAR [None]
  - CHOROID MELANOMA [None]
  - CHOROIDAL HAEMORRHAGE [None]
  - EYE DISORDER [None]
  - EYE PAIN [None]
  - OCULAR HYPERAEMIA [None]
  - RETINAL HAEMORRHAGE [None]
  - TUMOUR HAEMORRHAGE [None]
  - VISUAL ACUITY REDUCED [None]
